FAERS Safety Report 4372529-6 (Version None)
Quarter: 2004Q2

REPORT INFORMATION
  Report Type: 
  Country: None (occurrence: None)
  Receive Date: 20040608
  Receipt Date: 20040318
  Transmission Date: 20050107
  Serious: No
  Sender: FDA-Public Use
  Company Number: PHBS2004JP03780

PATIENT
  Age: 64 Year
  Sex: Male

DRUGS (7)
  1. ZADITEN [Suspect]
     Indication: PRURITUS
     Dosage: 2 UNK, UNK
     Route: 048
     Dates: start: 20040302, end: 20040311
  2. BAYASPIRIN [Concomitant]
     Indication: ANGINA PECTORIS
     Dosage: 100 MG, UNK
     Route: 048
     Dates: start: 20030410
  3. TENORMIN [Concomitant]
     Indication: HYPERTENSION
     Dosage: 25 MG, UNK
     Route: 048
     Dates: start: 20030410
  4. SIGMART [Concomitant]
     Indication: ANGINA PECTORIS
     Dosage: 15 MG, UNK
     Route: 048
     Dates: start: 20030410
  5. CALCIUM CARBONATE [Concomitant]
     Indication: HYPERPHOSPHATAEMIA
     Dosage: 3 G, UNK
     Route: 048
     Dates: start: 20020115
  6. ITOROL [Concomitant]
     Indication: ANGINA PECTORIS
     Dosage: 40 MG, UNK
     Route: 048
     Dates: start: 20030410
  7. ZYRTEC [Concomitant]
     Indication: DIARRHOEA
     Dosage: 10 MG/DAY
     Dates: start: 20040228, end: 20040302

REACTIONS (2)
  - ECZEMA [None]
  - URTICARIA PIGMENTOSA [None]
